FAERS Safety Report 7371780-0 (Version None)
Quarter: 2011Q1

REPORT INFORMATION
  Report Type: 
  Country: None (occurrence: None)
  Receive Date: 20110324
  Receipt Date: 20110316
  Transmission Date: 20110831
  Serious: Yes (Other)
  Sender: FDA-Public Use
  Company Number: US-AMGEN-USASP2011014714

PATIENT
  Age: 46 Year
  Sex: Female

DRUGS (2)
  1. METHOTREXATE [Concomitant]
     Dosage: 8 MG, QWK
     Dates: start: 20040101
  2. ENBREL [Suspect]
     Indication: RHEUMATOID ARTHRITIS
     Dosage: 50 MG, QWK
     Dates: start: 20101201

REACTIONS (8)
  - ALCOHOL INTOLERANCE [None]
  - INJECTION SITE ERYTHEMA [None]
  - HEADACHE [None]
  - VISION BLURRED [None]
  - DIZZINESS [None]
  - INJECTION SITE RASH [None]
  - DIZZINESS POSTURAL [None]
  - NAUSEA [None]
